FAERS Safety Report 18373495 (Version 1)
Quarter: 2020Q4

REPORT INFORMATION
  Report Type: Spontaneous
  Country: NZ (occurrence: NZ)
  Receive Date: 20201012
  Receipt Date: 20201012
  Transmission Date: 20210114
  Serious: Yes (Hospitalization)
  Sender: FDA-Public Use
  Company Number: NZ-MYLANLABS-2020M1085332

PATIENT
  Age: 22 Year
  Sex: Female

DRUGS (5)
  1. SUBOXONE [Suspect]
     Active Substance: BUPRENORPHINE HYDROCHLORIDE\NALOXONE HYDROCHLORIDE
     Dosage: 12 MILLIGRAM, QD
     Route: 060
  2. SUBOXONE [Suspect]
     Active Substance: BUPRENORPHINE HYDROCHLORIDE\NALOXONE HYDROCHLORIDE
     Indication: PORPHYRIA ACUTE
     Dosage: 2 MILLIGRAM, PRN
     Route: 060
  3. FENTANYL. [Suspect]
     Active Substance: FENTANYL
     Indication: PORPHYRIA ACUTE
     Dosage: HIGH DOSE; PERSISTENTLY ADMINISTERED FOR OVER SIX MONTHS
     Route: 061
  4. SUBOXONE [Suspect]
     Active Substance: BUPRENORPHINE HYDROCHLORIDE\NALOXONE HYDROCHLORIDE
     Dosage: 4 MILLIGRAM, PRN
     Route: 060
  5. SUBOXONE [Suspect]
     Active Substance: BUPRENORPHINE HYDROCHLORIDE\NALOXONE HYDROCHLORIDE
     Dosage: 16 MILLIGRAM, QD
     Route: 060

REACTIONS (4)
  - Withdrawal syndrome [Unknown]
  - Off label use [Unknown]
  - Drug use disorder [Unknown]
  - Drug dependence [Unknown]
